FAERS Safety Report 16525821 (Version 5)
Quarter: 2020Q3

REPORT INFORMATION
  Report Type: Report from Study
  Country: None (occurrence: CN)
  Receive Date: 20190703
  Receipt Date: 20200717
  Transmission Date: 20201102
  Serious: Yes (Hospitalization)
  Sender: FDA-Public Use
  Company Number: CN-ABBVIE-19K-035-2837059-00

PATIENT
  Age: 57 Year
  Sex: Female
  Weight: 42 kg

DRUGS (39)
  1. LEFLUNOMIDE. [Concomitant]
     Active Substance: LEFLUNOMIDE
     Indication: RHEUMATOID ARTHRITIS
     Route: 048
     Dates: start: 2014, end: 2019
  2. MEDICINAL CHARCOAL [Concomitant]
     Active Substance: ACTIVATED CHARCOAL
     Indication: PROPHYLAXIS
     Dosage: ONE BAG PER TIME
     Route: 048
     Dates: start: 20190302
  3. FEBUXOSTAT. [Concomitant]
     Active Substance: FEBUXOSTAT
     Indication: PRODUCT USED FOR UNKNOWN INDICATION
     Route: 048
     Dates: start: 20190304
  4. DIACEREIN [Concomitant]
     Active Substance: DIACEREIN
     Indication: ANTIINFLAMMATORY THERAPY
     Route: 048
     Dates: start: 20190308, end: 20190318
  5. DIACEREIN [Concomitant]
     Active Substance: DIACEREIN
     Route: 048
  6. DICLOFENAC DIETHYLAMINE [Concomitant]
     Active Substance: DICLOFENAC DIETHYLAMINE
     Indication: ANALGESIC THERAPY
     Route: 061
     Dates: start: 20190308, end: 20190318
  7. HUMIRA [Suspect]
     Active Substance: ADALIMUMAB
     Indication: RHEUMATOID ARTHRITIS
     Route: 058
     Dates: start: 20190307
  8. DIOSMECTITE [Concomitant]
     Active Substance: MONTMORILLONITE
     Indication: PRODUCT USED FOR UNKNOWN INDICATION
     Dosage: ONE BAG ONCE
     Route: 048
     Dates: start: 20190302
  9. CALCITRIOL. [Concomitant]
     Active Substance: CALCITRIOL
     Indication: PRODUCT USED FOR UNKNOWN INDICATION
     Route: 048
     Dates: start: 20190308, end: 20200407
  10. DEXAMETHASONE SODIUM PHOSPHATE. [Concomitant]
     Active Substance: DEXAMETHASONE SODIUM PHOSPHATE
     Indication: PRODUCT USED FOR UNKNOWN INDICATION
     Dosage: ONE INJECTION ONCE
     Route: 058
     Dates: start: 20190317, end: 20190317
  11. COMPOUND LIQUORICE [Concomitant]
     Route: 048
     Dates: start: 20190502, end: 20190522
  12. MOSAPRIDE CITRATE [Concomitant]
     Active Substance: MOSAPRIDE CITRATE
     Indication: PRODUCT USED FOR UNKNOWN INDICATION
     Route: 048
     Dates: start: 20190303
  13. BULLEYACONITINE A [Concomitant]
     Active Substance: BULLEYACONITINE A
     Indication: PRODUCT USED FOR UNKNOWN INDICATION
     Route: 048
     Dates: start: 20190311, end: 20190313
  14. MELOXICAM. [Concomitant]
     Active Substance: MELOXICAM
     Indication: ANALGESIC THERAPY
     Route: 048
     Dates: start: 20190313, end: 20190318
  15. UREMIC [Concomitant]
     Indication: RENAL DISORDER
     Dosage: UNIT DOSE WAS 2?CLEARANCE GRANULE
     Route: 048
     Dates: start: 20190513, end: 202002
  16. COLLOIDAL BISMUTH PECTIN [Concomitant]
     Active Substance: BISMUTH
     Indication: GASTRIC DISORDER
     Dosage: SUSPENSION
     Route: 048
     Dates: start: 20190513, end: 201906
  17. SHENNONG [Concomitant]
     Indication: ANALGESIC THERAPY
  18. CIMETIDINE [Concomitant]
     Active Substance: CIMETIDINE
     Indication: PRODUCT USED FOR UNKNOWN INDICATION
     Dosage: ONE INJECTION ONCE
     Route: 042
     Dates: start: 20190302
  19. CALCIUM CARBONATE WITH D3 [Concomitant]
     Active Substance: CALCIUM CARBONATE\CHOLECALCIFEROL
     Indication: PRODUCT USED FOR UNKNOWN INDICATION
     Route: 048
     Dates: start: 20190308, end: 20200407
  20. METHYLPREDNISOLONE. [Concomitant]
     Active Substance: METHYLPREDNISOLONE
     Indication: ANTIINFLAMMATORY THERAPY
     Route: 048
     Dates: start: 20190512
  21. SHENKANG [Concomitant]
     Active Substance: HERBALS
     Indication: CARDIOVASCULAR DISORDER
     Route: 042
     Dates: start: 20190513, end: 20190513
  22. COMPOUND DIGESTIVE ENZYME [Concomitant]
     Active Substance: DIETARY SUPPLEMENT
     Indication: PRODUCT USED FOR UNKNOWN INDICATION
     Route: 048
     Dates: start: 20190303
  23. HYDROXYCHLOROQUINE SULFATE. [Concomitant]
     Active Substance: HYDROXYCHLOROQUINE SULFATE
     Indication: RHEUMATOID ARTHRITIS
     Route: 048
     Dates: start: 20190307, end: 20190318
  24. ELCATONIN [Concomitant]
     Active Substance: ELCATONIN
     Indication: OSTEOPOROSIS
     Route: 030
     Dates: start: 20190308, end: 20190318
  25. COLLOIDAL BISMUTH PECTIN [Concomitant]
     Active Substance: BISMUTH
     Indication: PROPHYLAXIS
     Route: 048
     Dates: start: 20190311, end: 20190318
  26. COLLOIDAL BISMUTH PECTIN [Concomitant]
     Active Substance: BISMUTH
     Route: 048
     Dates: start: 20190513, end: 201906
  27. LEVAMLODIPINE BESYLATE [Concomitant]
     Active Substance: LEVAMLODIPINE BESYLATE
     Indication: BLOOD PRESSURE MANAGEMENT
     Route: 048
     Dates: start: 2018
  28. DIMETHICONE. [Concomitant]
     Active Substance: DIMETHICONE
     Indication: PRODUCT USED FOR UNKNOWN INDICATION
     Dosage: ONE BOTTLE ONCE
     Route: 048
     Dates: start: 20190317, end: 20190317
  29. COBAMAMIDE [Concomitant]
     Active Substance: COBAMAMIDE
     Indication: PROPHYLAXIS
     Dates: start: 20190513, end: 202002
  30. ENALAPRIL MALEATE. [Concomitant]
     Active Substance: ENALAPRIL MALEATE
     Indication: BLOOD PRESSURE MANAGEMENT
     Route: 048
     Dates: start: 2018
  31. COMPOUND LIQUORICE [Concomitant]
     Indication: COUGH
     Route: 048
     Dates: start: 20190302, end: 2019
  32. ATORVASTATIN CALCIUM. [Concomitant]
     Active Substance: ATORVASTATIN CALCIUM
     Indication: BLOOD PRESSURE MANAGEMENT
     Route: 048
     Dates: start: 20190307, end: 20190318
  33. ZOLEDRONIC ACID [Concomitant]
     Active Substance: ZOLEDRONIC ACID
     Indication: PRODUCT USED FOR UNKNOWN INDICATION
     Dosage: ONE INJECTION ONCE
     Route: 042
     Dates: start: 20190308
  34. LIDOCAINE HYDROCHLORIDE. [Concomitant]
     Active Substance: LIDOCAINE HYDROCHLORIDE
     Indication: PRODUCT USED FOR UNKNOWN INDICATION
     Dosage: ONE INJECTION ONCE
     Route: 058
     Dates: start: 20190317, end: 20190317
  35. SHENNONG [Concomitant]
     Indication: PAIN
     Dates: start: 20190514, end: 201906
  36. LEVAMLODIPINE BESYLATE [Concomitant]
     Active Substance: LEVAMLODIPINE BESYLATE
     Route: 048
     Dates: start: 20190308
  37. MAGNESIUM SULFATE. [Concomitant]
     Active Substance: MAGNESIUM SULFATE
     Indication: PRODUCT USED FOR UNKNOWN INDICATION
     Dosage: TWO INJECTIONS ONCE
     Route: 058
     Dates: start: 20190317, end: 20190317
  38. LIDOCAINE HYDROCHLORIDE. [Concomitant]
     Active Substance: LIDOCAINE HYDROCHLORIDE
     Indication: PRODUCT USED FOR UNKNOWN INDICATION
     Dosage: ONE INJECTION ONCE
     Route: 048
     Dates: start: 20190317, end: 20190317
  39. PANTOPRAZOLE SODIUM. [Concomitant]
     Active Substance: PANTOPRAZOLE SODIUM
     Indication: PROPHYLAXIS
     Route: 042
     Dates: start: 20190311, end: 20190318

REACTIONS (1)
  - Dysbiosis [Recovered/Resolved]

NARRATIVE: CASE EVENT DATE: 20190511
